FAERS Safety Report 5188373-6 (Version None)
Quarter: 2006Q4

REPORT INFORMATION
  Report Type: 
  Country: None (occurrence: None)
  Receive Date: 20061221
  Receipt Date: 20061219
  Transmission Date: 20070319
  Serious: Yes (Death, Other)
  Sender: FDA-Public Use
  Company Number: GB-PURDUE-GBR_2006_0002701

PATIENT

DRUGS (4)
  1. MORPHINE SULFATE [Suspect]
     Indication: CANCER PAIN
     Dosage: 340 MG, DAILY
     Route: 048
  2. NAPROXEN [Suspect]
     Indication: CANCER PAIN
     Route: 065
  3. ACETAMINOPHEN [Suspect]
     Indication: DRUG USE FOR UNKNOWN INDICATION
     Route: 065
  4. PAMIDRONATE DISODIUM [Concomitant]
     Indication: DRUG USE FOR UNKNOWN INDICATION
     Route: 065

REACTIONS (3)
  - DEATH [None]
  - DRUG INEFFECTIVE [None]
  - SOMNOLENCE [None]
